FAERS Safety Report 4319298-3 (Version None)
Quarter: 2004Q1

REPORT INFORMATION
  Report Type: 
  Country: None (occurrence: None)
  Receive Date: 20040316
  Receipt Date: 20040302
  Transmission Date: 20041129
  Serious: Yes (Hospitalization, Other)
  Sender: FDA-Public Use
  Company Number: 2004202023HK

PATIENT
  Age: 15 Year
  Sex: Female

DRUGS (10)
  1. SOLU-MEDROL [Suspect]
     Indication: RESPIRATORY DISORDER
     Dosage: 20  MG/KG, IV
     Route: 042
  2. CEFOTAXIME SODIUM [Concomitant]
  3. CLARITHROMYCIN [Concomitant]
  4. OXYGEN (OXYGEN) [Concomitant]
  5. RIBAVIRIN [Concomitant]
  6. HYDROCORTISONE [Concomitant]
  7. VANCOMYCIN HYDROCHLORIDE [Concomitant]
  8. IMIPENEM (IMIPENEM) [Concomitant]
  9. MIDAZOLAM HCL [Concomitant]
  10. ATRACURIUM BESYLATE [Concomitant]

REACTIONS (10)
  - BLOOD ALBUMIN DECREASED [None]
  - BLOOD LACTATE DEHYDROGENASE INCREASED [None]
  - BLOOD PRESSURE INCREASED [None]
  - CORONA VIRUS INFECTION [None]
  - FLUID RETENTION [None]
  - HYPOKALAEMIA [None]
  - LYMPHOPENIA [None]
  - SEVERE ACUTE RESPIRATORY SYNDROME [None]
  - SINUS BRADYCARDIA [None]
  - WEIGHT DECREASED [None]
